FAERS Safety Report 7002415-4 (Version None)
Quarter: 2010Q3

REPORT INFORMATION
  Report Type: 
  Country: None (occurrence: None)
  Receive Date: 20100920
  Receipt Date: 20100423
  Transmission Date: 20110219
  Serious: No
  Sender: FDA-Public Use
  Company Number: US-ASTRAZENECA-2010SE12816

PATIENT
  Age: 17 Year
  Sex: Female
  Weight: 88 kg

DRUGS (4)
  1. SEROQUEL [Suspect]
     Indication: SLEEP DISORDER
     Route: 048
  2. SEROQUEL [Suspect]
     Indication: DEPRESSION
     Route: 048
  3. SEROQUEL [Suspect]
     Indication: BIPOLAR DISORDER
     Route: 048
  4. CITALOPRAM HYDROBROMIDE [Concomitant]
     Dates: start: 20100111

REACTIONS (2)
  - AGGRESSION [None]
  - PHYSICAL ASSAULT [None]
